FAERS Safety Report 4917176-X (Version None)
Quarter: 2006Q1

REPORT INFORMATION
  Report Type: 
  Country: None (occurrence: None)
  Receive Date: 20060221
  Receipt Date: 20050912
  Transmission Date: 20060701
  Serious: Yes (Disabling, Other)
  Sender: FDA-Public Use
  Company Number: DE-BRISTOL-MYERS SQUIBB COMPANY-13108782

PATIENT
  Age: 39 Year
  Sex: Female
  Weight: 64 kg

DRUGS (6)
  1. TAXOL [Suspect]
     Indication: BREAST CANCER
     Route: 042
     Dates: start: 20050822, end: 20050912
  2. CYCLOPHOSPHAMIDE [Suspect]
     Indication: BREAST CANCER
     Route: 042
     Dates: start: 20050630, end: 20050810
  3. XELODA [Suspect]
     Indication: BREAST CANCER
     Route: 048
     Dates: start: 20050822, end: 20050905
  4. EPIRUBICIN [Suspect]
     Indication: BREAST CANCER
     Route: 042
     Dates: start: 20050630, end: 20050810
  5. NEULASTA [Concomitant]
     Route: 058
  6. DARBEPOETIN ALFA [Concomitant]

REACTIONS (2)
  - ERYTHEMA [None]
  - PARAESTHESIA [None]
